FAERS Safety Report 4481194-9 (Version None)
Quarter: 2004Q4

REPORT INFORMATION
  Report Type: 
  Country: None (occurrence: None)
  Receive Date: 20041021
  Receipt Date: 20041010
  Transmission Date: 20050328
  Serious: Yes (Life-Threatening, Hospitalization, Other)
  Sender: FDA-Public Use
  Company Number: DE-JNJFOC-20040802463

PATIENT
  Sex: Male
  Weight: 80 kg

DRUGS (6)
  1. RISPERDAL CONSTA [Suspect]
     Route: 030
  2. RISPERDAL CONSTA [Suspect]
     Route: 030
  3. RISPERDAL [Suspect]
     Route: 049
  4. HALDOL [Suspect]
     Route: 049
  5. TAVOR [Suspect]
     Route: 049
  6. NORVASC [Concomitant]
     Route: 049

REACTIONS (2)
  - EXTRAPYRAMIDAL DISORDER [None]
  - RESPIRATORY FAILURE [None]
